FAERS Safety Report 4748144-9 (Version None)
Quarter: 2005Q3

REPORT INFORMATION
  Report Type: 
  Country: None (occurrence: None)
  Receive Date: 20050818
  Receipt Date: 20040806
  Transmission Date: 20060218
  Serious: Yes (Life-Threatening, Hospitalization)
  Sender: FDA-Public Use
  Company Number: 2004PK01332

PATIENT
  Age: 21658 Day
  Sex: Male
  Weight: 125 kg

DRUGS (4)
  1. SEROQUEL [Suspect]
     Indication: MANIA
     Route: 048
     Dates: start: 20040624
  2. ERGENYL [Suspect]
     Indication: MANIA
     Route: 048
     Dates: start: 20040630
  3. CLONAZEPAM [Suspect]
     Indication: MANIA
     Route: 048
     Dates: start: 20040719
  4. XANEF [Suspect]
     Indication: HYPERTENSION
     Dosage: PERMANENT MEDICATION
     Route: 048

REACTIONS (8)
  - BLOOD CREATINE INCREASED [None]
  - BLOOD GLUCOSE INCREASED [None]
  - C-REACTIVE PROTEIN INCREASED [None]
  - DEEP VEIN THROMBOSIS [None]
  - DEHYDRATION [None]
  - EMBOLISM [None]
  - MANIA [None]
  - PULMONARY EMBOLISM [None]
